FAERS Safety Report 15342667 (Version 1)
Quarter: 2018Q3

REPORT INFORMATION
  Report Type: Report from Study
  Country: US (occurrence: US)
  Receive Date: 20180903
  Receipt Date: 20180903
  Transmission Date: 20181010
  Serious: Yes (Death)
  Sender: FDA-Public Use
  Company Number: US-ROCHE-2177952

PATIENT
  Sex: Female

DRUGS (8)
  1. ERIVEDGE [Suspect]
     Active Substance: VISMODEGIB
     Indication: BASAL CELL CARCINOMA
     Route: 048
     Dates: end: 2018
  2. GABAPENTIN. [Concomitant]
     Active Substance: GABAPENTIN
     Dosage: ONGOING: NO
     Route: 065
  3. FUROSEMIDE. [Concomitant]
     Active Substance: FUROSEMIDE
     Dosage: ONGOING :NO
     Route: 065
  4. METOPROLOL. [Concomitant]
     Active Substance: METOPROLOL
     Dosage: ONGOING :NO
     Route: 065
  5. ERIVEDGE [Suspect]
     Active Substance: VISMODEGIB
     Indication: BASAL CELL CARCINOMA
     Dosage: ONGOING: NO
     Route: 048
     Dates: start: 201505
  6. BASAGLAR [Concomitant]
     Active Substance: INSULIN GLARGINE
     Dosage: ONGOING: NO
     Route: 065
  7. ISOSORBIDE. [Concomitant]
     Active Substance: ISOSORBIDE
  8. ELIQUIS [Concomitant]
     Active Substance: APIXABAN
     Dosage: ONGOING: NO
     Route: 065

REACTIONS (1)
  - Death [Fatal]
